FAERS Safety Report 12905385 (Version 2)
Quarter: 2018Q1

REPORT INFORMATION
  Report Type: Report from Study
  Country: BR (occurrence: BR)
  Receive Date: 20161103
  Receipt Date: 20180330
  Transmission Date: 20180508
  Serious: Yes (Life-Threatening, Other)
  Sender: FDA-Public Use
  Company Number: BR-BRISTOL-MYERS SQUIBB COMPANY-BMS-2016-090552

PATIENT

DRUGS (1)
  1. NIVOLUMAB [Suspect]
     Active Substance: NIVOLUMAB
     Indication: HODGKIN^S DISEASE
     Route: 065

REACTIONS (4)
  - Demyelination [Recovering/Resolving]
  - Aphasia [Recovering/Resolving]
  - Monoparesis [Recovering/Resolving]
  - Pyrexia [Recovering/Resolving]
